FAERS Safety Report 7490140-5 (Version None)
Quarter: 2011Q2

REPORT INFORMATION
  Report Type: 
  Country: None (occurrence: None)
  Receive Date: 20110517
  Receipt Date: 20110517
  Transmission Date: 20111010
  Serious: Yes (Hospitalization)
  Sender: FDA-Public Use
  Company Number: None

PATIENT
  Sex: Male
  Weight: 56.2 kg

DRUGS (12)
  1. G-CSF(FILGRASTIM, AMGEN) [Suspect]
     Dosage: 24800 MCG
  2. CYTARABINE [Suspect]
     Dosage: 107270 MG
  3. MERCAPTOPURINE [Suspect]
     Dosage: 13900 MG
  4. METHOTREXATE [Suspect]
     Dosage: 37266.5 MG
  5. PEG-L-ASPARAGINASE(K-H) [Suspect]
     Dosage: 36900 IU
  6. CYCLOPHOSPHAMIDE [Suspect]
     Dosage: 11471 MG
  7. VINCRISTINE SULFATE [Suspect]
     Dosage: 38 MG
  8. L-ASPARAGINASE [Suspect]
     Dosage: 17580 IU
  9. ETOPOSIDE [Suspect]
     Dosage: 3810 MG
  10. DOXORUBICIN HYDROCHLORIDE [Suspect]
     Dosage: 198 MG
  11. LEUCOVORIN CALCIUM [Suspect]
     Dosage: 446 MG
  12. PREDNISONE [Suspect]
     Dosage: 1680 MG

REACTIONS (9)
  - ANAPHYLACTIC REACTION [None]
  - BONE MARROW TRANSPLANT [None]
  - FEBRILE NEUTROPENIA [None]
  - TREATMENT RELATED SECONDARY MALIGNANCY [None]
  - MULTI-ORGAN FAILURE [None]
  - BONE MARROW DISORDER [None]
  - ACUTE LYMPHOCYTIC LEUKAEMIA RECURRENT [None]
  - TESTICULAR DISORDER [None]
  - INFECTION [None]
